FAERS Safety Report 4871974-X (Version None)
Quarter: 2006Q1

REPORT INFORMATION
  Report Type: 
  Country: None (occurrence: None)
  Receive Date: 20060104
  Receipt Date: 20051222
  Transmission Date: 20060701
  Serious: Yes (Hospitalization)
  Sender: FDA-Public Use
  Company Number: DE-ROCHE-430000

PATIENT
  Age: 67 Year
  Weight: 82 kg

DRUGS (5)
  1. KEVATRIL [Suspect]
     Indication: ANTIEMETIC SUPPORTIVE CARE
     Route: 042
     Dates: start: 20050805, end: 20050805
  2. KEVATRIL [Suspect]
     Route: 042
     Dates: start: 20050806, end: 20050807
  3. FLUOROURACIL [Concomitant]
  4. CYCLOPHOSPHAMIDE [Concomitant]
  5. EPIRUBICIN [Concomitant]

REACTIONS (1)
  - NEUTROPENIA [None]
